FAERS Safety Report 18126277 (Version 1)
Quarter: 2020Q3

REPORT INFORMATION
  Report Type: Spontaneous
  Country: US (occurrence: US)
  Receive Date: 20200808
  Receipt Date: 20200808
  Transmission Date: 20201103
  Serious: No
  Sender: FDA-Public Use
  Company Number: US-009507513-2007USA010408

PATIENT
  Sex: Male

DRUGS (2)
  1. DECADRON [Suspect]
     Active Substance: DEXAMETHASONE
     Dosage: UNK
  2. INLYTA [Concomitant]
     Active Substance: AXITINIB
     Dosage: 3 TABLETS BY MOUTH 2 TIMES A DAY
     Route: 048

REACTIONS (3)
  - Back pain [Unknown]
  - Nausea [Recovered/Resolved]
  - Malaise [Unknown]
